FAERS Safety Report 9674927 (Version 1)
Quarter: 2013Q4

REPORT INFORMATION
  Report Type: Spontaneous
  Country: US (occurrence: None)
  Receive Date: 20131106
  Receipt Date: 20131106
  Transmission Date: 20140711
  Serious: Yes (Hospitalization)
  Sender: FDA-Public Use
  Company Number: None

PATIENT
  Age: 57 Year
  Sex: Male
  Weight: 117.94 kg

DRUGS (1)
  1. BUPIVACAINE [Suspect]
     Dates: start: 20131029

REACTIONS (1)
  - Arthralgia [None]
